FAERS Safety Report 14402986 (Version 3)
Quarter: 2018Q2

REPORT INFORMATION
  Report Type: Report from Study
  Country: BE (occurrence: BE)
  Receive Date: 20180117
  Receipt Date: 20180511
  Transmission Date: 20180711
  Serious: Yes (Other)
  Sender: FDA-Public Use
  Company Number: BE-PFIZER INC-2018014933

PATIENT
  Age: 81 Year
  Sex: Female

DRUGS (5)
  1. CARBOPLATIN. [Suspect]
     Active Substance: CARBOPLATIN
     Indication: OVARIAN CANCER
     Dosage: 80 MG/M2 (2 AUC), EVERY 3 WEEKS
     Route: 042
     Dates: start: 20170601
  2. AVASTIN [Suspect]
     Active Substance: BEVACIZUMAB
     Indication: OVARIAN CANCER
     Dosage: 990 MG, EVERY 3 WEEKS
     Route: 042
     Dates: start: 20170601
  3. AVASTIN [Suspect]
     Active Substance: BEVACIZUMAB
     Dosage: 795 MG, EVERY 3 WEEKS
     Route: 042
     Dates: start: 20170824
  4. PACLITAXEL. [Suspect]
     Active Substance: PACLITAXEL
     Indication: OVARIAN CANCER
     Dosage: 80 MG/M2, EVERY 3 WEEKS
     Route: 042
     Dates: start: 20170601
  5. AVASTIN [Suspect]
     Active Substance: BEVACIZUMAB
     Dosage: 780 MG, EVERY 3 WEEKS
     Route: 042
     Dates: start: 20170713

REACTIONS (4)
  - Hypertension [Not Recovered/Not Resolved]
  - Epistaxis [Recovered/Resolved]
  - Oedema peripheral [Recovered/Resolved]
  - Neutrophil count decreased [Recovered/Resolved]

NARRATIVE: CASE EVENT DATE: 20170629
